FAERS Safety Report 8032983-5 (Version None)
Quarter: 2011Q4

REPORT INFORMATION
  Report Type: 
  Country: None (occurrence: None)
  Receive Date: 20111223
  Receipt Date: 20111214
  Transmission Date: 20120403
  Serious: Yes (Hospitalization, Other)
  Sender: FDA-Public Use
  Company Number: 2011MA017607

PATIENT
  Sex: Female

DRUGS (11)
  1. LASIX [Concomitant]
  2. SYNTHROID [Concomitant]
  3. DIGOXIN [Suspect]
     Dosage: 0.125 MG; QD; PO
     Route: 048
     Dates: start: 20080527
  4. NAMENDA [Concomitant]
  5. LOTENSIN [Concomitant]
  6. ASPIRIN [Concomitant]
  7. LOTREL [Concomitant]
  8. NORVASC [Concomitant]
  9. PLAVIX [Concomitant]
  10. ARICEPT [Concomitant]
  11. ZIAC [Concomitant]

REACTIONS (18)
  - HEMIPARESIS [None]
  - CAROTID ARTERY STENOSIS [None]
  - CEREBRAL INFARCTION [None]
  - LACUNAR INFARCTION [None]
  - PAIN IN EXTREMITY [None]
  - VISUAL IMPAIRMENT [None]
  - HYPOAESTHESIA [None]
  - JOINT RANGE OF MOTION DECREASED [None]
  - CEREBRAL ATROPHY [None]
  - PERSONALITY CHANGE [None]
  - MEMORY IMPAIRMENT [None]
  - HYPOTHYROIDISM [None]
  - INTRACRANIAL PRESSURE INCREASED [None]
  - LEFT VENTRICULAR HYPERTROPHY [None]
  - HYPERTENSION [None]
  - TRANSIENT ISCHAEMIC ATTACK [None]
  - MITRAL VALVE DISEASE [None]
  - CEREBROVASCULAR ACCIDENT [None]
